FAERS Safety Report 12947090 (Version 1)
Quarter: 2016Q4

REPORT INFORMATION
  Report Type: Spontaneous
  Country: US (occurrence: US)
  Receive Date: 20161116
  Receipt Date: 20161116
  Transmission Date: 20170207
  Serious: Yes (Hospitalization)
  Sender: FDA-Public Use
  Company Number: US-TEVA-705882USA

PATIENT
  Sex: Female
  Weight: 65.83 kg

DRUGS (3)
  1. CARTIA XT [Suspect]
     Active Substance: DILTIAZEM HYDROCHLORIDE
     Indication: BLOOD PRESSURE MEASUREMENT
     Route: 048
     Dates: end: 201604
  2. CARTIA XT [Suspect]
     Active Substance: DILTIAZEM HYDROCHLORIDE
     Route: 048
     Dates: start: 201606, end: 201607
  3. DILTIAZEM. [Concomitant]
     Active Substance: DILTIAZEM
     Dates: start: 1990

REACTIONS (8)
  - Dysphagia [Unknown]
  - Blood pressure abnormal [Unknown]
  - Palpitations [Unknown]
  - Urticaria [Unknown]
  - Dyspnoea [Unknown]
  - Pruritus [Unknown]
  - Product leakage [Unknown]
  - Swelling face [Unknown]

NARRATIVE: CASE EVENT DATE: 2016
